FAERS Safety Report 8800162 (Version 1)
Quarter: 2012Q4

REPORT INFORMATION
  Report Type: Spontaneous
  Country: US (occurrence: None)
  Receive Date: 20120918
  Receipt Date: 20120918
  Transmission Date: 20130627
  Serious: No
  Sender: FDA-Public Use
  Company Number: None

PATIENT
  Age: 56 Year
  Sex: Female

DRUGS (2)
  1. HECTOROL [Suspect]
  2. EPOGEN [Concomitant]

REACTIONS (3)
  - Respiratory distress [None]
  - Anaphylactic reaction [None]
  - Memory impairment [None]
